FAERS Safety Report 7707572-X (Version None)
Quarter: 2011Q3

REPORT INFORMATION
  Report Type: 
  Country: None (occurrence: None)
  Receive Date: 20110824
  Receipt Date: 20110816
  Transmission Date: 20111222
  Serious: Yes (Hospitalization, Other)
  Sender: FDA-Public Use
  Company Number: US-AMGEN-USASP2011041704

PATIENT
  Age: 80 Year
  Sex: Female

DRUGS (6)
  1. RANITIDINE [Concomitant]
  2. ANTIHYPERTENSIVES [Concomitant]
  3. CALCIUM CARBONATE [Concomitant]
  4. ALENDRONATE SODIUM [Concomitant]
  5. VERAPAMIL [Concomitant]
  6. PROLIA [Suspect]
     Indication: OSTEOPOROSIS POSTMENOPAUSAL
     Dosage: 60 MG, Q6MO
     Dates: start: 20110628

REACTIONS (13)
  - MEMORY IMPAIRMENT [None]
  - DEAFNESS UNILATERAL [None]
  - FATIGUE [None]
  - VISION BLURRED [None]
  - RETCHING [None]
  - DIPLOPIA [None]
  - DRY MOUTH [None]
  - DYSARTHRIA [None]
  - DIZZINESS [None]
  - FALL [None]
  - BALANCE DISORDER [None]
  - LIP DRY [None]
  - GLOSSODYNIA [None]
